FAERS Safety Report 6199481-5 (Version None)
Quarter: 2009Q2

REPORT INFORMATION
  Report Type: 
  Country: None (occurrence: None)
  Receive Date: 20090522
  Receipt Date: 20090512
  Transmission Date: 20091009
  Serious: Yes (Death, Hospitalization)
  Sender: FDA-Public Use
  Company Number: ZA-PFIZER INC-2009206855

PATIENT
  Age: 73 Year

DRUGS (8)
  1. ZITHROMAX [Suspect]
     Indication: BRONCHOPNEUMONIA
     Dosage: 500 MG, 1X/DAY
     Route: 048
     Dates: start: 20090305, end: 20090311
  2. INVANZ [Concomitant]
     Dosage: UNK
     Route: 042
     Dates: start: 20090305, end: 20090512
  3. GLUCOPHAGE [Concomitant]
     Dosage: 850 MG, 2X/DAY
  4. LASIX [Concomitant]
     Dosage: UNK
  5. HEMOFER [Concomitant]
     Dosage: UNK
     Dates: start: 20090311
  6. DIAMICRON [Concomitant]
  7. SPIRACTIN [Concomitant]
  8. GLUCOMED [Concomitant]
     Dosage: 80 MG, 2X/DAY

REACTIONS (5)
  - CHOLELITHIASIS [None]
  - DIALYSIS [None]
  - HEPATIC FAILURE [None]
  - HEPATITIS FULMINANT [None]
  - RENAL FAILURE [None]
